FAERS Safety Report 16263959 (Version 1)
Quarter: 2019Q2

REPORT INFORMATION
  Report Type: Spontaneous
  Country: US (occurrence: US)
  Receive Date: 20190502
  Receipt Date: 20190502
  Transmission Date: 20190711
  Serious: Yes (Hospitalization, Other)
  Sender: FDA-Public Use
  Company Number: US-GLAXOSMITHKLINE-US2019077901

PATIENT
  Age: 79 Year
  Sex: Female

DRUGS (2)
  1. INCRUSE ELLIPTA [Suspect]
     Active Substance: UMECLIDINIUM BROMIDE
     Indication: DYSPNOEA
  2. INCRUSE ELLIPTA [Suspect]
     Active Substance: UMECLIDINIUM BROMIDE
     Indication: CARDIAC FAILURE CONGESTIVE
     Dosage: 1 PUFF(S), 1D
     Route: 055
     Dates: start: 201903

REACTIONS (2)
  - Rectal haemorrhage [Not Recovered/Not Resolved]
  - Bedridden [Unknown]

NARRATIVE: CASE EVENT DATE: 201903
